FAERS Safety Report 12276585 (Version 1)
Quarter: 2016Q2

REPORT INFORMATION
  Report Type: Spontaneous
  Country: US (occurrence: US)
  Receive Date: 20160418
  Receipt Date: 20160418
  Transmission Date: 20160815
  Serious: No
  Sender: FDA-Public Use
  Company Number: US-GLAXOSMITHKLINE-US2016046357

PATIENT
  Sex: Male

DRUGS (1)
  1. ARNUITY ELLIPTA [Suspect]
     Active Substance: FLUTICASONE FUROATE
     Indication: ASTHMA
     Dosage: UNK, QD
     Route: 055

REACTIONS (4)
  - Cough [Recovered/Resolved]
  - Device use error [Unknown]
  - Secretion discharge [Recovered/Resolved]
  - Oropharyngeal pain [Recovered/Resolved]
